FAERS Safety Report 6704131-2 (Version None)
Quarter: 2010Q2

REPORT INFORMATION
  Report Type: 
  Country: None (occurrence: None)
  Receive Date: 20100430
  Receipt Date: 20100421
  Transmission Date: 20101027
  Serious: Yes (Hospitalization)
  Sender: FDA-Public Use
  Company Number: JP-JNJFOC-20091005408

PATIENT
  Sex: Female
  Weight: 98 kg

DRUGS (14)
  1. DOXORUBICIN HCL [Suspect]
     Indication: OVARIAN CANCER RECURRENT
     Dosage: CYCLE 3
     Route: 042
     Dates: start: 20090729
  2. DOXORUBICIN HCL [Suspect]
     Dosage: CYCLE 1
     Route: 042
     Dates: start: 20090729
  3. DOXORUBICIN HCL [Suspect]
     Dosage: CYCLE 2
     Route: 042
     Dates: start: 20090729
  4. ASPIRIN [Concomitant]
     Route: 048
  5. ASPIRIN [Concomitant]
     Route: 048
  6. PLETAL [Concomitant]
     Route: 048
  7. PLETAL [Concomitant]
     Route: 048
  8. WARFARIN SODIUM [Concomitant]
     Route: 048
  9. WARFARIN SODIUM [Concomitant]
     Route: 048
  10. PAXIL [Concomitant]
     Route: 048
  11. LAMISIL [Concomitant]
     Route: 048
  12. GRANISETRON [Concomitant]
     Indication: PROPHYLAXIS
     Route: 042
  13. DECADRON [Concomitant]
     Indication: PROPHYLAXIS
     Route: 042
  14. PARAMIDIN [Concomitant]
     Route: 048

REACTIONS (7)
  - DEEP VEIN THROMBOSIS [None]
  - DISEASE PROGRESSION [None]
  - LYMPHOEDEMA [None]
  - PALMAR-PLANTAR ERYTHRODYSAESTHESIA SYNDROME [None]
  - PLEURAL EFFUSION [None]
  - PULMONARY EMBOLISM [None]
  - VENOUS THROMBOSIS LIMB [None]
